FAERS Safety Report 5972899-9 (Version None)
Quarter: 2008Q4

REPORT INFORMATION
  Report Type: 
  Country: None (occurrence: None)
  Receive Date: 20081201
  Receipt Date: 20081119
  Transmission Date: 20090506
  Serious: Yes (Other)
  Sender: FDA-Public Use
  Company Number: PHHY2008DE28897

PATIENT
  Sex: Male

DRUGS (3)
  1. LEPONEX [Suspect]
     Indication: SCHIZOPHRENIA, PARANOID TYPE
     Dosage: 225 MG DAILY
     Route: 048
     Dates: start: 20080818, end: 20080901
  2. GLIANIMON [Concomitant]
     Indication: SCHIZOPHRENIA, PARANOID TYPE
     Dosage: 8 MG PER DAY
     Route: 048
     Dates: start: 20080827, end: 20080902
  3. METOPROLOL SUCCINATE [Concomitant]
     Indication: TACHYCARDIA
     Dosage: 47.5 MG DAILY
     Route: 048
     Dates: start: 20080827, end: 20080929

REACTIONS (3)
  - INFECTION [None]
  - LABORATORY TEST ABNORMAL [None]
  - PYREXIA [None]
